FAERS Safety Report 6249923-1 (Version None)
Quarter: 2009Q2

REPORT INFORMATION
  Report Type: 
  Country: None (occurrence: None)
  Receive Date: 20090629
  Receipt Date: 20090618
  Transmission Date: 20091009
  Serious: Yes (Other)
  Sender: FDA-Public Use
  Company Number: AU-ASTRAZENECA-2009SE02880

PATIENT
  Age: 37 Year
  Sex: Female

DRUGS (2)
  1. ROPIVACAINE [Suspect]
     Dosage: TWO TAP BLOCKS AT 2X8 ML/HR
     Route: 042
  2. ROPIVACAINE [Suspect]
     Dosage: ONE PARA-VERTEBRAL BLOCK AT 4 ML/HR
     Route: 042

REACTIONS (3)
  - DRUG TOXICITY [None]
  - OVERDOSE [None]
  - PARAESTHESIA [None]
